FAERS Safety Report 4497342-0 (Version None)
Quarter: 2004Q4

REPORT INFORMATION
  Report Type: 
  Country: None (occurrence: None)
  Receive Date: 20041110
  Receipt Date: 20041029
  Transmission Date: 20050328
  Serious: Yes (Hospitalization)
  Sender: FDA-Public Use
  Company Number: US-BRISTOL-MYERS SQUIBB COMPANY-12751277

PATIENT
  Age: 66 Year
  Sex: Male
  Weight: 90 kg

DRUGS (3)
  1. CISPLATIN [Suspect]
     Indication: SQUAMOUS CELL CARCINOMA
     Dosage: THERAPY DATES: 07-APR TO 19-MAY-2000
     Route: 042
     Dates: start: 20000519, end: 20000519
  2. CETUXIMAB [Suspect]
     Indication: SQUAMOUS CELL CARCINOMA
     Dosage: THERAPY DATES: 07-APR TO 19-MAY-2000
     Route: 042
     Dates: start: 20000519, end: 20000519
  3. SENOKOT [Concomitant]
     Dates: start: 20000527

REACTIONS (4)
  - BLOOD CREATININE INCREASED [None]
  - BLOOD UREA INCREASED [None]
  - BREATH SOUNDS DECREASED [None]
  - DEHYDRATION [None]
